FAERS Safety Report 16308889 (Version 1)
Quarter: 2019Q2

REPORT INFORMATION
  Report Type: Report from Study
  Country: US (occurrence: US)
  Receive Date: 20190514
  Receipt Date: 20190514
  Transmission Date: 20190711
  Serious: Yes (Other)
  Sender: FDA-Public Use
  Company Number: US-BAYER-2019-068723

PATIENT
  Age: 56 Year
  Sex: Male

DRUGS (4)
  1. VITRAKVI [Suspect]
     Active Substance: LAROTRECTINIB
     Indication: OESOPHAGEAL CARCINOMA
     Dosage: 25 MG QAM AND 50 MG IN EVENING
     Route: 048
     Dates: start: 20190427
  2. VITRAKVI [Suspect]
     Active Substance: LAROTRECTINIB
     Indication: OESOPHAGEAL CARCINOMA
     Dosage: 25 MG, BID
     Route: 048
     Dates: start: 20190424
  3. VITRAKVI [Suspect]
     Active Substance: LAROTRECTINIB
     Indication: OESOPHAGEAL CARCINOMA
     Dosage: 50 MG, BID
     Route: 048
     Dates: start: 20190430
  4. VITRAKVI [Suspect]
     Active Substance: LAROTRECTINIB
     Indication: OESOPHAGEAL CARCINOMA
     Dosage: 100 MG, BID
     Route: 048
     Dates: start: 20190403, end: 20190403

REACTIONS (4)
  - Neuropathy peripheral [Not Recovered/Not Resolved]
  - Dizziness [Not Recovered/Not Resolved]
  - Dyspnoea [Recovered/Resolved]
  - Sensitive skin [Recovering/Resolving]

NARRATIVE: CASE EVENT DATE: 20190403
